FAERS Safety Report 7057115-1 (Version None)
Quarter: 2010Q4

REPORT INFORMATION
  Report Type: 
  Country: None (occurrence: None)
  Receive Date: 20101021
  Receipt Date: 20101021
  Transmission Date: 20110411
  Serious: Yes (Other)
  Sender: FDA-Public Use
  Company Number: None

PATIENT
  Age: 39 Year
  Sex: Male
  Weight: 79.5 kg

DRUGS (2)
  1. HABITROL [Suspect]
     Indication: SMOKING CESSATION THERAPY
     Dosage: 14MG 1/DAILY
     Route: 061
     Dates: start: 20101012, end: 20101020
  2. HABITROL [Suspect]

REACTIONS (3)
  - BURNS SECOND DEGREE [None]
  - CHEMICAL BURN OF SKIN [None]
  - PRODUCT QUALITY ISSUE [None]
